FAERS Safety Report 6212714-1 (Version None)
Quarter: 2009Q2

REPORT INFORMATION
  Report Type: 
  Country: None (occurrence: None)
  Receive Date: 20090603
  Receipt Date: 20070514
  Transmission Date: 20091009
  Serious: Yes (Hospitalization, Other)
  Sender: FDA-Public Use
  Company Number: US-ASTRAZENECA-2006UW24459

PATIENT
  Age: 23656 Day
  Sex: Female
  Weight: 74.4 kg

DRUGS (23)
  1. SEROQUEL [Suspect]
     Dosage: 25 MG TABLET DISPENSED
     Route: 048
     Dates: start: 20011107
  2. HALDOL [Concomitant]
  3. THORAZINE [Concomitant]
  4. ZYPREXA [Concomitant]
  5. CLONAZEPAM [Concomitant]
  6. LEXAPRO [Concomitant]
  7. LITHIUM CARBONATE [Concomitant]
     Indication: BIPOLAR DISORDER
     Dosage: 300 MG -900 MG
     Route: 048
  8. PRANDIN [Concomitant]
     Dosage: 1 MG - 5.5 MG
     Route: 048
  9. ACCUPRIL [Concomitant]
     Indication: BLOOD PRESSURE
     Dosage: 10 MG ONCE A DAY - 40 MG ONCE A DAY
     Route: 048
  10. NEURONTIN [Concomitant]
     Indication: NEUROPATHY PERIPHERAL
     Dosage: 300 MG THREE TIMES A DAY - 600 MG THREE TIMES A DAY
     Route: 048
  11. LOPID [Concomitant]
     Indication: HYPERLIPIDAEMIA
     Route: 048
  12. PAXIL [Concomitant]
     Dosage: 10 MG - 20 MG AT NIGHT
     Route: 048
  13. METHYLPRED [Concomitant]
  14. WARFARIN [Concomitant]
  15. METFORMIN HCL [Concomitant]
     Dosage: 500 MG - 2000 MG
     Route: 048
  16. COGENTIN [Concomitant]
  17. CELEBREX [Concomitant]
  18. PROLIXIN [Concomitant]
  19. MAXZIDE [Concomitant]
  20. AVANDIA [Concomitant]
  21. REMERON [Concomitant]
  22. AMBIEN [Concomitant]
  23. DEPAKOTE [Concomitant]
     Indication: CONVULSION

REACTIONS (5)
  - DIABETES MELLITUS [None]
  - DIABETIC NEPHROPATHY [None]
  - DIABETIC RETINOPATHY [None]
  - NEUROPATHY PERIPHERAL [None]
  - RENAL FAILURE ACUTE [None]
